FAERS Safety Report 23623097 (Version 1)
Quarter: 2024Q1

REPORT INFORMATION
  Report Type: Spontaneous
  Country: JP (occurrence: JP)
  Receive Date: 20240312
  Receipt Date: 20240312
  Transmission Date: 20240409
  Serious: Yes (Hospitalization)
  Sender: FDA-Public Use
  Company Number: JP-DSJP-DSJ-2023-150631

PATIENT
  Age: 70 Year
  Sex: Female
  Weight: 58 kg

DRUGS (17)
  1. ENHERTU [Suspect]
     Active Substance: FAM-TRASTUZUMAB DERUXTECAN-NXKI
     Indication: HER2 low breast cancer
     Dosage: 5.4 MG/KG, ONCE EVERY 3 WK
     Route: 041
     Dates: start: 20230815, end: 20230815
  2. ENHERTU [Suspect]
     Active Substance: FAM-TRASTUZUMAB DERUXTECAN-NXKI
     Dosage: 4.4 MG/KG, ONCE EVERY 3 WK
     Route: 041
     Dates: start: 20230908, end: 20230908
  3. ENHERTU [Suspect]
     Active Substance: FAM-TRASTUZUMAB DERUXTECAN-NXKI
     Dosage: 4.4 MG/KG, ONCE EVERY 3 WK
     Route: 041
     Dates: start: 20230929, end: 20230929
  4. ENHERTU [Suspect]
     Active Substance: FAM-TRASTUZUMAB DERUXTECAN-NXKI
     Dosage: 4.4 MG/KG, ONCE EVERY 3 WK
     Route: 041
     Dates: start: 20231020, end: 20231020
  5. ENHERTU [Suspect]
     Active Substance: FAM-TRASTUZUMAB DERUXTECAN-NXKI
     Dosage: 4.4 MG/KG, ONCE EVERY 3 WK
     Route: 041
     Dates: start: 20231110, end: 20231110
  6. TEPRENONE [Concomitant]
     Active Substance: TEPRENONE
     Indication: Gastritis
     Dosage: 50 MG, TID
     Route: 048
     Dates: start: 20110309, end: 20230929
  7. BIO-THREE [Concomitant]
     Active Substance: HERBALS
     Indication: Diarrhoea
     Dosage: UNK, TID
     Route: 048
     Dates: start: 20210129
  8. BILANOA OD [Concomitant]
     Indication: Dermatitis allergic
     Dosage: 20 MG, QD
     Route: 048
     Dates: start: 20230310
  9. CYMBALTA [Concomitant]
     Active Substance: DULOXETINE HYDROCHLORIDE
     Indication: Neuropathy peripheral
     Dosage: 20 MG, TID
     Route: 048
     Dates: start: 20190222
  10. LOXOPROFEN SODIUM [Concomitant]
     Active Substance: LOXOPROFEN SODIUM
     Indication: Headache
     Dosage: 60 MG, AS NEEDED
     Route: 048
     Dates: start: 20111226
  11. BROTIZOLAM [Concomitant]
     Active Substance: BROTIZOLAM
     Indication: Insomnia
     Dosage: 0.25 MG, AS NEEDED
     Route: 048
     Dates: start: 20220207
  12. TULOBUTEROL [Concomitant]
     Active Substance: TULOBUTEROL
     Indication: Dyspnoea
     Dosage: 2 MG, QD
     Route: 050
     Dates: start: 20230731
  13. METOCLOPRAMIDE [Concomitant]
     Active Substance: METOCLOPRAMIDE
     Indication: Nausea
     Dosage: 5 MG, AS NEEDED
     Route: 048
     Dates: start: 20230509
  14. KETOPROFEN [Concomitant]
     Active Substance: KETOPROFEN
     Indication: Myalgia
     Dosage: 40 MG, AS NEEDED
     Route: 050
     Dates: start: 20150710
  15. DECADRON [Concomitant]
     Active Substance: DEXAMETHASONE
     Indication: Nausea
     Dosage: 4 MG, BID
     Route: 048
     Dates: start: 20230816, end: 20231110
  16. ESOMEPRAZOLE MAGNESIUM [Concomitant]
     Active Substance: ESOMEPRAZOLE\ESOMEPRAZOLE MAGNESIUM\ESOMEPRAZOLE MAGNESIUM DIHYDRATE
     Indication: Gastrointestinal disorder prophylaxis
     Dosage: 20 MG, QD
     Route: 048
     Dates: start: 20230816
  17. BISOPROLOL FUMARATE [Concomitant]
     Active Substance: BISOPROLOL FUMARATE
     Indication: Atrial fibrillation
     Dosage: 0.625 MG, QD
     Route: 048
     Dates: start: 20221025

REACTIONS (4)
  - Interstitial lung disease [Recovering/Resolving]
  - Atypical mycobacterial pneumonia [Not Recovered/Not Resolved]
  - Malaise [Recovering/Resolving]
  - Nausea [Recovering/Resolving]

NARRATIVE: CASE EVENT DATE: 20230908
